FAERS Safety Report 7740736-8 (Version None)
Quarter: 2011Q3

REPORT INFORMATION
  Report Type: 
  Country: None (occurrence: None)
  Receive Date: 20110909
  Receipt Date: 20110907
  Transmission Date: 20111222
  Serious: Yes (Congenital Anomaly)
  Sender: FDA-Public Use
  Company Number: US-PFIZER INC-2011159770

PATIENT
  Sex: Male
  Weight: 1.4 kg

DRUGS (14)
  1. CYMBALTA [Concomitant]
     Dosage: 60 MG, UNK
     Route: 064
     Dates: start: 20090709
  2. HYDROXYZINE [Concomitant]
     Dosage: UNK
     Route: 064
     Dates: start: 20090709
  3. ZOLOFT [Suspect]
     Dosage: 50 MG, 1X/DAY
     Route: 064
     Dates: start: 20090120
  4. NORCO [Concomitant]
     Dosage: 10/325MG
     Route: 064
     Dates: start: 20091117
  5. ZOLOFT [Suspect]
     Dosage: 100 MG, UNK
     Route: 064
     Dates: start: 20090701
  6. OXYMORPHONE [Concomitant]
     Dosage: 40 MG, 3X/DAY
     Route: 064
     Dates: start: 20090709
  7. CETIRIZINE [Concomitant]
     Dosage: 10 MG, UNK
     Route: 064
     Dates: start: 20090709
  8. KEFLEX [Concomitant]
     Dosage: 500 MG, UNK
     Route: 064
     Dates: start: 20090806
  9. DILAUDID [Concomitant]
     Dosage: 2 MG/1ML
     Route: 064
     Dates: start: 20090806
  10. PROMETHAZINE [Concomitant]
     Dosage: 25MG/ML
     Route: 064
     Dates: start: 20090806
  11. VICODIN [Concomitant]
     Dosage: 5/500MG
     Route: 064
     Dates: start: 20090806
  12. ZOLOFT [Suspect]
     Dosage: UNK
     Dates: start: 20090806
  13. NEURONTIN [Concomitant]
     Dosage: 300 MG, UNK
     Route: 064
     Dates: start: 20090709
  14. PREDNISONE [Concomitant]
     Dosage: UNK
     Route: 064
     Dates: start: 20090709

REACTIONS (2)
  - MATERNAL EXPOSURE DURING PREGNANCY [None]
  - PREMATURE BABY [None]
